FAERS Safety Report 23968400 (Version 1)
Quarter: 2024Q2

REPORT INFORMATION
  Report Type: Spontaneous
  Country: US (occurrence: US)
  Receive Date: 20240612
  Receipt Date: 20240612
  Transmission Date: 20240716
  Serious: Yes (Hospitalization, Other)
  Sender: FDA-Public Use
  Company Number: US-JNJFOC-20240614901

PATIENT
  Age: 61 Year
  Sex: Male
  Weight: 65.8 kg

DRUGS (14)
  1. OPSUMIT [Suspect]
     Active Substance: MACITENTAN
     Indication: Product used for unknown indication
     Route: 048
  2. ORENITRAM [Suspect]
     Active Substance: TREPROSTINIL
     Indication: Pulmonary arterial hypertension
     Route: 048
     Dates: start: 20221129
  3. TYLENOL [Concomitant]
     Active Substance: ACETAMINOPHEN
  4. TAMSULOSIN HYDROCHLORIDE [Concomitant]
     Active Substance: TAMSULOSIN HYDROCHLORIDE
  5. FIORICET [Concomitant]
     Active Substance: ACETAMINOPHEN\BUTALBITAL\CAFFEINE
  6. JARDIANCE [Concomitant]
     Active Substance: EMPAGLIFLOZIN
  7. SILDENAFIL CITRATE [Concomitant]
     Active Substance: SILDENAFIL CITRATE
  8. MUCINEX [Concomitant]
     Active Substance: GUAIFENESIN
  9. OXYGEN [Concomitant]
     Active Substance: OXYGEN
  10. FUROSEMIDE [Concomitant]
     Active Substance: FUROSEMIDE
  11. FUROSEMIDE [Concomitant]
     Active Substance: FUROSEMIDE
  12. AMLODIPINE BESYLATE [Concomitant]
     Active Substance: AMLODIPINE BESYLATE
  13. CARVEDILOL [Concomitant]
     Active Substance: CARVEDILOL
  14. SPIRONOLACTONE AND HYDROCHLOROTHIAZIDE [Concomitant]
     Active Substance: HYDROCHLOROTHIAZIDE\SPIRONOLACTONE

REACTIONS (7)
  - Right ventricular failure [Unknown]
  - Chronic kidney disease [Unknown]
  - Hepatic cirrhosis [Unknown]
  - Respiratory failure [Unknown]
  - Antinuclear antibody positive [Unknown]
  - Confusional state [Unknown]
  - Staring [Unknown]
